FAERS Safety Report 9937375 (Version 2)
Quarter: 2014Q1

REPORT INFORMATION
  Report Type: Report from Study
  Country: NL (occurrence: NL)
  Receive Date: 20140303
  Receipt Date: 20140310
  Transmission Date: 20141002
  Serious: Yes (Hospitalization)
  Sender: FDA-Public Use
  Company Number: NL-ROCHE-1357407

PATIENT
  Age: 56 Year
  Sex: Male

DRUGS (3)
  1. CAPECITABINE [Suspect]
     Indication: GASTRIC CANCER
     Dosage: DATE OF LAST DOSE OF CAPECITABINE: 05/FEB/2014
     Route: 048
     Dates: start: 20140115
  2. EPIRUBICIN [Suspect]
     Indication: GASTRIC CANCER
     Dosage: DATE OF LAST DOSE OF EPIRUBICIN: 05/FEB/2014
     Route: 042
     Dates: start: 20140115
  3. CISPLATIN [Suspect]
     Indication: GASTRIC CANCER
     Dosage: DATE OF LAST DOSE OF CISPLATIN: 05/FEB/2014
     Route: 042
     Dates: start: 20140115

REACTIONS (1)
  - Peripheral arterial occlusive disease [Unknown]
